FAERS Safety Report 20906244 (Version 1)
Quarter: 2022Q2

REPORT INFORMATION
  Report Type: Spontaneous
  Country: US (occurrence: None)
  Receive Date: 20220602
  Receipt Date: 20220602
  Transmission Date: 20220721
  Serious: Yes (Death)
  Sender: FDA-Public Use
  Company Number: None

PATIENT
  Sex: Female

DRUGS (1)
  1. NEULASTA [Suspect]
     Active Substance: PEGFILGRASTIM
     Indication: Endometrial cancer
     Dosage: OTHER QUANTITY : 6 MG/0.6ML;?OTHER FREQUENCY : EVERY 3 WEEKS;?
     Route: 058
     Dates: start: 20200929

REACTIONS (1)
  - Death [None]
